FAERS Safety Report 4463827-6 (Version None)
Quarter: 2004Q3

REPORT INFORMATION
  Report Type: 
  Country: None (occurrence: None)
  Receive Date: 20040929
  Receipt Date: 20040917
  Transmission Date: 20050211
  Serious: Yes (Death)
  Sender: FDA-Public Use
  Company Number: 2004EU001744

PATIENT
  Sex: Female

DRUGS (2)
  1. PROGRAF [Suspect]
     Indication: CORNEAL TRANSPLANT
     Dosage: 1.00 MG, BID, ORAL
     Route: 048
     Dates: start: 20030415
  2. DEXAMETHASONE [Concomitant]

REACTIONS (2)
  - CARDIAC FAILURE CONGESTIVE [None]
  - LOWER RESPIRATORY TRACT INFECTION [None]
